FAERS Safety Report 26181489 (Version 1)
Quarter: 2025Q4

REPORT INFORMATION
  Report Type: Spontaneous
  Country: US (occurrence: US)
  Receive Date: 20251221
  Receipt Date: 20251221
  Transmission Date: 20260118
  Serious: No
  Sender: PFIZER
  Company Number: US-PFIZER INC-202500245145

PATIENT
  Sex: Female

DRUGS (1)
  1. NYVEPRIA [Suspect]
     Active Substance: PEGFILGRASTIM-APGF
     Dosage: UNK

REACTIONS (6)
  - Palpitations [Unknown]
  - Myositis [Unknown]
  - Dyspepsia [Unknown]
  - Agitation [Unknown]
  - Headache [Unknown]
  - Tendonitis [Unknown]
